FAERS Safety Report 9147642 (Version 1)
Quarter: 2013Q1

REPORT INFORMATION
  Report Type: Report from Study
  Country: EG (occurrence: EG)
  Receive Date: 20130307
  Receipt Date: 20130307
  Transmission Date: 20140127
  Serious: Yes (Death, Life-Threatening, Hospitalization)
  Sender: FDA-Public Use
  Company Number: EG-BAXTER-2013BAX007874

PATIENT
  Age: 59 Year
  Sex: Female
  Weight: 64 kg

DRUGS (11)
  1. ENDOXAN VIAL 1G [Suspect]
     Indication: NON-HODGKIN^S LYMPHOMA
     Route: 065
  2. RITUXIMAB [Suspect]
     Indication: NON-HODGKIN^S LYMPHOMA
     Route: 042
     Dates: start: 20120718
  3. RITUXIMAB [Suspect]
     Route: 058
     Dates: start: 20120815
  4. RITUXIMAB [Suspect]
     Route: 058
     Dates: start: 20121212, end: 20121212
  5. FLUDARABINE [Suspect]
     Indication: NON-HODGKIN^S LYMPHOMA
     Route: 065
  6. FUCICORT [Concomitant]
     Indication: RASH
     Route: 061
     Dates: start: 20120819, end: 20120827
  7. PARACETAMOL [Concomitant]
     Indication: PYREXIA
     Route: 065
     Dates: start: 20120718, end: 20120819
  8. PARACETAMOL [Concomitant]
     Route: 065
     Dates: start: 20121021, end: 20121021
  9. PARACETAMOL [Concomitant]
     Route: 065
     Dates: start: 20121126, end: 20121126
  10. NIFUROXAZIDE [Concomitant]
     Indication: PRODUCT USED FOR UNKNOWN INDICATION
     Route: 065
     Dates: start: 20121101, end: 20121106
  11. NIFUROXAZIDE [Concomitant]
     Indication: DIARRHOEA
     Route: 065
     Dates: start: 20121221

REACTIONS (5)
  - Multi-organ failure [Fatal]
  - Febrile neutropenia [Not Recovered/Not Resolved]
  - Neutropenic sepsis [Not Recovered/Not Resolved]
  - Anaemia [Recovered/Resolved with Sequelae]
  - Platelet count decreased [Recovering/Resolving]
